FAERS Safety Report 21571925 (Version 2)
Quarter: 2022Q4

REPORT INFORMATION
  Report Type: Spontaneous
  Country: US (occurrence: US)
  Receive Date: 20221109
  Receipt Date: 20221221
  Transmission Date: 20230113
  Serious: No
  Sender: FDA-Public Use
  Company Number: US-TEVA-2022-US-2822071

PATIENT
  Age: 75 Year
  Sex: Female

DRUGS (4)
  1. AJOVY [Suspect]
     Active Substance: FREMANEZUMAB-VFRM
     Indication: Migraine
     Dosage: 225 MG / 1.5 ML
     Route: 065
     Dates: start: 20201130
  2. AJOVY [Suspect]
     Active Substance: FREMANEZUMAB-VFRM
     Dosage: 225 MG / 1.5 ML
     Route: 065
     Dates: start: 202208
  3. AJOVY [Suspect]
     Active Substance: FREMANEZUMAB-VFRM
     Dosage: 225 MG / 1.5 ML
     Route: 065
     Dates: start: 202210
  4. AJOVY [Suspect]
     Active Substance: FREMANEZUMAB-VFRM
     Dosage: 225 MG / 1.5 ML
     Route: 065
     Dates: start: 202211

REACTIONS (6)
  - Amnesia [Unknown]
  - Incorrect dose administered [Unknown]
  - Device leakage [Unknown]
  - Needle issue [Unknown]
  - Drug dose omission by device [Unknown]
  - Device malfunction [Unknown]

NARRATIVE: CASE EVENT DATE: 20220801
